FAERS Safety Report 7725461-1 (Version None)
Quarter: 2011Q3

REPORT INFORMATION
  Report Type: 
  Country: None (occurrence: None)
  Receive Date: 20110902
  Receipt Date: 20110824
  Transmission Date: 20111222
  Serious: Yes (Hospitalization)
  Sender: FDA-Public Use
  Company Number: US-JNJFOC-20110403165

PATIENT
  Sex: Male
  Weight: 129.8 kg

DRUGS (6)
  1. ROCEPHIN [Suspect]
     Indication: PNEUMONIA
     Route: 042
  2. DARUNAVIR [Concomitant]
     Route: 065
  3. RALTEGRAVIR [Concomitant]
     Route: 065
  4. ETRAVIRINE [Concomitant]
     Route: 065
  5. LEVAQUIN [Suspect]
     Indication: PNEUMONIA
     Route: 048
  6. RITONAVIR [Concomitant]
     Route: 065

REACTIONS (1)
  - TACHYARRHYTHMIA [None]
